FAERS Safety Report 8246643-9 (Version None)
Quarter: 2012Q1

REPORT INFORMATION
  Report Type: 
  Country: None (occurrence: None)
  Receive Date: 20120330
  Receipt Date: 20120326
  Transmission Date: 20120608
  Serious: Yes (Other)
  Sender: FDA-Public Use
  Company Number: JP-EISAI INC-E2090-01998-SPO-JP

PATIENT
  Sex: Female

DRUGS (8)
  1. SEROQUEL [Concomitant]
     Dosage: UNKNOWN
  2. ABILIFY [Concomitant]
     Dosage: UNKNOWN
  3. SYMMETREL [Concomitant]
     Dosage: UNKNOWN
  4. REQUIP [Concomitant]
     Dosage: UNKNOWN
  5. SELEGILINE HCL [Suspect]
     Indication: PARKINSON'S DISEASE
     Dosage: 5 MG
     Route: 048
     Dates: start: 20070921, end: 20110820
  6. PRAMIPEXOLE DIHYDROCHLORIDE [Concomitant]
     Dosage: UNKNOWN
  7. ZONISAMIDE [Suspect]
     Indication: PARKINSON'S DISEASE
     Route: 048
     Dates: start: 20101119, end: 20110820
  8. MENEST [Concomitant]
     Dosage: UNKNOWN

REACTIONS (2)
  - NEUROLEPTIC MALIGNANT SYNDROME [None]
  - PHOTOPHOBIA [None]
